FAERS Safety Report 20443621 (Version 1)
Quarter: 2022Q1

REPORT INFORMATION
  Report Type: Spontaneous
  Country: US (occurrence: None)
  Receive Date: 20220207
  Receipt Date: 20220207
  Transmission Date: 20220423
  Serious: Yes (Other)
  Sender: FDA-Public Use
  Company Number: None

PATIENT
  Age: 52 Year
  Sex: Female
  Weight: 56.7 kg

DRUGS (1)
  1. GAMMAPLEX [Suspect]
     Active Substance: HUMAN IMMUNOGLOBULIN G
     Indication: Immunology test abnormal
     Dosage: OTHER FREQUENCY : WEEKLY;?
     Route: 042

REACTIONS (3)
  - Dyspepsia [None]
  - Burning sensation [None]
  - Infusion related reaction [None]

NARRATIVE: CASE EVENT DATE: 20220203
